FAERS Safety Report 10616669 (Version 2)
Quarter: 2014Q4

REPORT INFORMATION
  Report Type: Report from Study
  Country: US (occurrence: US)
  Receive Date: 20141201
  Receipt Date: 20141210
  Transmission Date: 20150529
  Serious: Yes (Death, Life-Threatening, Hospitalization)
  Sender: FDA-Public Use
  Company Number: US-SA-2014SA165087

PATIENT
  Age: 70 Year
  Sex: Female
  Weight: 144.8 kg

DRUGS (16)
  1. FUROSEMIDE. [Concomitant]
     Active Substance: FUROSEMIDE
     Dates: start: 20141103, end: 20141107
  2. GABAPENTIN. [Concomitant]
     Active Substance: GABAPENTIN
     Dates: start: 20141023
  3. SOLU-MEDROL [Concomitant]
     Active Substance: METHYLPREDNISOLONE SODIUM SUCCINATE
     Dates: start: 20141107
  4. BUMEX [Concomitant]
     Active Substance: BUMETANIDE
  5. DILTIAZEM [Concomitant]
     Active Substance: DILTIAZEM
     Dates: start: 20141028, end: 20141104
  6. AMIODARONE [Concomitant]
     Active Substance: AMIODARONE
  7. OXYCODONE [Concomitant]
     Active Substance: OXYCODONE
     Dates: start: 20141031, end: 20141103
  8. ALLOPURINOL. [Concomitant]
     Active Substance: ALLOPURINOL
  9. LISINOPRIL. [Concomitant]
     Active Substance: LISINOPRIL
     Dates: start: 20141023, end: 20141027
  10. CARVEDILOL. [Concomitant]
     Active Substance: CARVEDILOL
     Dates: start: 20141023, end: 20141104
  11. PROTONIX [Concomitant]
     Active Substance: PANTOPRAZOLE SODIUM
     Dates: start: 20141028
  12. LOSARTAN [Concomitant]
     Active Substance: LOSARTAN
     Dates: start: 20141024, end: 20141104
  13. DIGOXIN. [Concomitant]
     Active Substance: DIGOXIN
     Dates: start: 20141106, end: 20141107
  14. METOPROLOL [Concomitant]
     Active Substance: METOPROLOL
     Dates: start: 20141104
  15. CLOFARABINE [Suspect]
     Active Substance: CLOFARABINE
     Indication: ACUTE MYELOID LEUKAEMIA
     Dosage: TOTAL DOSE ADMINISTERED: 360 MG
     Route: 065
     Dates: start: 20141030, end: 20141103
  16. COUMADIN [Concomitant]
     Active Substance: WARFARIN SODIUM

REACTIONS (3)
  - Sepsis [Not Recovered/Not Resolved]
  - Toxic epidermal necrolysis [Not Recovered/Not Resolved]
  - Cerebrovascular accident [Fatal]

NARRATIVE: CASE EVENT DATE: 20141105
